FAERS Safety Report 15328668 (Version 4)
Quarter: 2019Q3

REPORT INFORMATION
  Report Type: Spontaneous
  Country: FI (occurrence: FI)
  Receive Date: 20180829
  Receipt Date: 20190901
  Transmission Date: 20191004
  Serious: Yes (Hospitalization, Other)
  Sender: FDA-Public Use
  Company Number: FI-BIOGEN-2018BI00624765

PATIENT
  Age: 9 Year
  Sex: Male

DRUGS (1)
  1. SPINRAZA [Suspect]
     Active Substance: NUSINERSEN
     Indication: SPINAL MUSCULAR ATROPHY
     Route: 050
     Dates: start: 20180613, end: 20180711

REACTIONS (12)
  - Vomiting [Unknown]
  - Alanine aminotransferase increased [Unknown]
  - Ketoacidosis [Not Recovered/Not Resolved]
  - Inflammatory marker increased [Not Recovered/Not Resolved]
  - Hypoglycaemia [Unknown]
  - Protein total decreased [Unknown]
  - Malnutrition [Unknown]
  - Infection [Unknown]
  - Leukocytosis [Not Recovered/Not Resolved]
  - Hepatic steatosis [Unknown]
  - Hepatic failure [Not Recovered/Not Resolved]
  - Nausea [Unknown]

NARRATIVE: CASE EVENT DATE: 2018
